FAERS Safety Report 20628728 (Version 1)
Quarter: 2022Q1

REPORT INFORMATION
  Report Type: Spontaneous
  Country: SA (occurrence: SA)
  Receive Date: 20220323
  Receipt Date: 20220323
  Transmission Date: 20220424
  Serious: Yes (Congenital Anomaly, Other)
  Sender: FDA-Public Use
  Company Number: SA-NOVARTISPH-NVSC2022SA062751

PATIENT

DRUGS (2)
  1. CARBAMAZEPINE [Suspect]
     Active Substance: CARBAMAZEPINE
     Indication: Foetal exposure during pregnancy
     Dosage: MATERNAL DOSE: 800 MG, QD
     Route: 064
  2. FOLIC ACID [Suspect]
     Active Substance: FOLIC ACID
     Indication: Foetal exposure during pregnancy
     Dosage: MATERNAL DOSE: 5 MG
     Route: 064

REACTIONS (6)
  - Retinopathy congenital [Unknown]
  - Genitalia external ambiguous [Unknown]
  - Premature baby [Unknown]
  - Low birth weight baby [Unknown]
  - Apgar score low [Unknown]
  - Foetal exposure during pregnancy [Unknown]
